FAERS Safety Report 14554783 (Version 2)
Quarter: 2018Q1

REPORT INFORMATION
  Report Type: Spontaneous
  Country: US (occurrence: US)
  Receive Date: 20180220
  Receipt Date: 20180228
  Transmission Date: 20180509
  Serious: Yes (Other)
  Sender: FDA-Public Use
  Company Number: US-PFIZER INC-2017161586

PATIENT
  Age: 67 Year
  Sex: Female
  Weight: 66.67 kg

DRUGS (2)
  1. XELJANZ XR [Suspect]
     Active Substance: TOFACITINIB CITRATE
     Indication: RHEUMATOID ARTHRITIS
     Dosage: 11 MG, 1X/DAY
     Route: 048
     Dates: start: 2016
  2. XELJANZ XR [Suspect]
     Active Substance: TOFACITINIB CITRATE
     Indication: FIBROMYALGIA

REACTIONS (4)
  - Blindness [Unknown]
  - Myocardial infarction [Unknown]
  - Vitreous floaters [Unknown]
  - Vitreous disorder [Unknown]

NARRATIVE: CASE EVENT DATE: 201801
